FAERS Safety Report 19196245 (Version 1)
Quarter: 2021Q2

REPORT INFORMATION
  Report Type: Spontaneous
  Country: US (occurrence: US)
  Receive Date: 20210429
  Receipt Date: 20210429
  Transmission Date: 20210717
  Serious: Yes (Other)
  Sender: FDA-Public Use
  Company Number: US-PHARMATHEN-GPV2021PHT051669

PATIENT
  Age: 33 Year
  Sex: Male

DRUGS (2)
  1. DIMETHYL FUMARATE [Suspect]
     Active Substance: DIMETHYL FUMARATE
     Indication: MULTIPLE SCLEROSIS
     Route: 065
     Dates: start: 201802
  2. FINGOLIMOD. [Suspect]
     Active Substance: FINGOLIMOD
     Indication: MULTIPLE SCLEROSIS
     Route: 065
     Dates: start: 2014, end: 201712

REACTIONS (3)
  - Multiple sclerosis relapse [Recovered/Resolved]
  - Lymphopenia [Recovering/Resolving]
  - Therapy non-responder [Recovered/Resolved]

NARRATIVE: CASE EVENT DATE: 201804
